FAERS Safety Report 9459337 (Version 2)
Quarter: 2013Q3

REPORT INFORMATION
  Report Type: Report from Study
  Country: US (occurrence: US)
  Receive Date: 20130815
  Receipt Date: 20130905
  Transmission Date: 20140515
  Serious: Yes (Death)
  Sender: FDA-Public Use
  Company Number: US-ROCHE-1261948

PATIENT
  Age: 53 Year
  Sex: Male
  Weight: 119.4 kg

DRUGS (1)
  1. XELODA [Suspect]
     Indication: HEPATIC CANCER
     Dosage: 4 PO BID
     Route: 048
     Dates: start: 20110702

REACTIONS (1)
  - Disease progression [Fatal]
